FAERS Safety Report 10331004 (Version 2)
Quarter: 2014Q4

REPORT INFORMATION
  Report Type: Spontaneous
  Country: DE (occurrence: DE)
  Receive Date: 20140722
  Receipt Date: 20141104
  Transmission Date: 20150528
  Serious: Yes (Life-Threatening, Hospitalization)
  Sender: FDA-Public Use
  Company Number: DE-BAYER-2014-109275

PATIENT
  Age: 32 Year
  Sex: Female
  Weight: 98 kg

DRUGS (1)
  1. MIRENA [Suspect]
     Active Substance: LEVONORGESTREL
     Dosage: 20 MCG/24HR, CONT
     Route: 015
     Dates: start: 201110, end: 201403

REACTIONS (15)
  - Heart rate irregular [Recovering/Resolving]
  - Panic attack [Recovering/Resolving]
  - Syncope [Recovering/Resolving]
  - Acne [Recovering/Resolving]
  - Depression [Recovering/Resolving]
  - Lethargy [Recovering/Resolving]
  - Palpitations [Recovering/Resolving]
  - Alopecia [Recovering/Resolving]
  - Palpitations [Recovering/Resolving]
  - Transient ischaemic attack [Recovering/Resolving]
  - Dizziness [Recovering/Resolving]
  - Labour pain [Recovering/Resolving]
  - Vaginal haemorrhage [Unknown]
  - Weight increased [Recovering/Resolving]
  - Mood swings [Recovering/Resolving]

NARRATIVE: CASE EVENT DATE: 201204
